FAERS Safety Report 8302771-0 (Version None)
Quarter: 2012Q2

REPORT INFORMATION
  Report Type: 
  Country: None (occurrence: None)
  Receive Date: 20120420
  Receipt Date: 20110803
  Transmission Date: 20120825
  Serious: No
  Sender: FDA-Public Use
  Company Number: US-PFIZER INC-K201100932

PATIENT
  Sex: Female

DRUGS (1)
  1. TAPAZOLE [Suspect]
     Dosage: 5 MG, UNK
     Route: 048

REACTIONS (1)
  - BLOOD GLUCOSE INCREASED [None]
